FAERS Safety Report 16032881 (Version 1)
Quarter: 2019Q1

REPORT INFORMATION
  Report Type: Report from Study
  Country: US (occurrence: US)
  Receive Date: 20190305
  Receipt Date: 20190305
  Transmission Date: 20190418
  Serious: Yes (Other)
  Sender: FDA-Public Use
  Company Number: US-ROCHE-2271762

PATIENT
  Age: 56 Year
  Sex: Male

DRUGS (1)
  1. OCREVUS [Suspect]
     Active Substance: OCRELIZUMAB
     Indication: PRIMARY PROGRESSIVE MULTIPLE SCLEROSIS
     Dosage: THE MOST RECENT DOSE : 13/FEB/2018
     Route: 065
     Dates: start: 20180425

REACTIONS (4)
  - Chills [Unknown]
  - Vomiting [Unknown]
  - Discomfort [Unknown]
  - Viral infection [Unknown]

NARRATIVE: CASE EVENT DATE: 20190218
